FAERS Safety Report 18267608 (Version 3)
Quarter: 2020Q4

REPORT INFORMATION
  Report Type: Spontaneous
  Country: US (occurrence: US)
  Receive Date: 20200915
  Receipt Date: 20201029
  Transmission Date: 20210113
  Serious: No
  Sender: FDA-Public Use
  Company Number: US-PFIZER INC-2020348073

PATIENT
  Age: 6 Year
  Sex: Female
  Weight: 38.1 kg

DRUGS (1)
  1. GENOTROPIN [Suspect]
     Active Substance: SOMATROPIN
     Dosage: 0.7 MG, 1X/DAY (NIGHTLY)

REACTIONS (4)
  - Device information output issue [Unknown]
  - Device use issue [Unknown]
  - Drug dose omission by device [Unknown]
  - Device issue [Unknown]
